FAERS Safety Report 8432504-9 (Version None)
Quarter: 2012Q2

REPORT INFORMATION
  Report Type: 
  Country: None (occurrence: None)
  Receive Date: 20120613
  Receipt Date: 20120611
  Transmission Date: 20120825
  Serious: Yes (Disabling, Other)
  Sender: FDA-Public Use
  Company Number: PHEH2012US005978

PATIENT
  Sex: Female

DRUGS (1)
  1. RECLAST [Suspect]
     Dosage: 5 MG, UNK
     Route: 042
     Dates: start: 20120322

REACTIONS (11)
  - ARTHRALGIA [None]
  - OEDEMA PERIPHERAL [None]
  - FEELING ABNORMAL [None]
  - SWELLING FACE [None]
  - PAIN [None]
  - PAIN IN EXTREMITY [None]
  - EYE PAIN [None]
  - FATIGUE [None]
  - ANGLE CLOSURE GLAUCOMA [None]
  - JOINT SWELLING [None]
  - HYPOKINESIA [None]
